FAERS Safety Report 4704714-5 (Version None)
Quarter: 2005Q2

REPORT INFORMATION
  Report Type: 
  Country: None (occurrence: None)
  Receive Date: 20050629
  Receipt Date: 20050616
  Transmission Date: 20051028
  Serious: Yes (Hospitalization)
  Sender: FDA-Public Use
  Company Number: EM2005-0287

PATIENT
  Age: 47 Year
  Sex: Male
  Weight: 64 kg

DRUGS (1)
  1. PROLEUKIN [Suspect]
     Indication: RENAL CELL CARCINOMA STAGE UNSPECIFIED
     Dosage: 6 MIU, BID, SUBCUTAN.
     Route: 058

REACTIONS (3)
  - ADENOIDAL HYPERTROPHY [None]
  - DEAFNESS [None]
  - EAR INFECTION [None]
